FAERS Safety Report 4548000-5 (Version None)
Quarter: 2004Q4

REPORT INFORMATION
  Report Type: 
  Country: None (occurrence: None)
  Receive Date: 20041220
  Receipt Date: 20040714
  Transmission Date: 20050328
  Serious: Yes (Hospitalization)
  Sender: FDA-Public Use
  Company Number: USA040772604

PATIENT
  Age: 43 Year
  Sex: Male
  Weight: 82 kg

DRUGS (3)
  1. HUMULIN R [Suspect]
     Indication: DIABETES MELLITUS
     Dates: start: 19940101, end: 19990101
  2. HUMULIN N [Suspect]
     Indication: DIABETES MELLITUS
     Dates: start: 19940101, end: 19990101
  3. HUMULIN 70/30 [Suspect]
     Indication: DIABETES MELLITUS
     Dosage: 40 U DAY
     Dates: start: 19990101

REACTIONS (6)
  - BLOOD GLUCOSE INCREASED [None]
  - BLOOD TESTOSTERONE DECREASED [None]
  - HEPATITIS C [None]
  - NEUROPATHY [None]
  - VISUAL ACUITY REDUCED [None]
  - WEIGHT INCREASED [None]
